FAERS Safety Report 15316631 (Version 2)
Quarter: 2018Q3

REPORT INFORMATION
  Report Type: Spontaneous
  Country: CA (occurrence: CA)
  Receive Date: 20180824
  Receipt Date: 20180831
  Transmission Date: 20181010
  Serious: Yes (Other)
  Sender: FDA-Public Use
  Company Number: CA-PURDUE PHARMA-CAN-2018-0008945

PATIENT
  Age: 61 Year
  Sex: Female
  Weight: 89.8 kg

DRUGS (6)
  1. OXY IR [Suspect]
     Active Substance: OXYCODONE HYDROCHLORIDE
     Indication: BREAKTHROUGH PAIN
     Dosage: UNK, PRN
     Route: 065
  2. OXYNEO [Suspect]
     Active Substance: OXYCODONE
     Indication: COMPLEX REGIONAL PAIN SYNDROME
     Dosage: 10 MG, TID
     Route: 065
     Dates: start: 2010, end: 20180720
  3. OXYCODONE [Suspect]
     Active Substance: OXYCODONE
     Indication: COMPLEX REGIONAL PAIN SYNDROME
     Dosage: 10 MG, TID
     Route: 065
     Dates: start: 20180720, end: 20180722
  4. OXYCODONE [Suspect]
     Active Substance: OXYCODONE
     Indication: LUNG CANCER METASTATIC
  5. OXYNEO [Suspect]
     Active Substance: OXYCODONE
     Dosage: 130 MG, DAILY (40 MG BID + 50 MG OD)
     Route: 065
     Dates: start: 20180722
  6. OXYCODONE [Suspect]
     Active Substance: OXYCODONE
     Indication: BONE PAIN

REACTIONS (7)
  - Metastases to lymph nodes [Unknown]
  - Metastases to spine [Unknown]
  - Bone pain [Unknown]
  - Sedation [Unknown]
  - Lung adenocarcinoma [Unknown]
  - Metastases to bone [Unknown]
  - Off label use [Unknown]
